FAERS Safety Report 7055246-3 (Version None)
Quarter: 2010Q4

REPORT INFORMATION
  Report Type: 
  Country: None (occurrence: None)
  Receive Date: 20101021
  Receipt Date: 20101008
  Transmission Date: 20110411
  Serious: Yes (Other)
  Sender: FDA-Public Use
  Company Number: PHHY2010US65799

PATIENT
  Sex: Female

DRUGS (1)
  1. FEMARA [Suspect]
     Dosage: 25 MG, QD
     Route: 048
     Dates: start: 20100501, end: 20100801

REACTIONS (3)
  - BONE DISORDER [None]
  - CARBOHYDRATE ANTIGEN 27.29 INCREASED [None]
  - DISEASE PROGRESSION [None]
